FAERS Safety Report 6158455-0 (Version None)
Quarter: 2009Q2

REPORT INFORMATION
  Report Type: 
  Country: None (occurrence: None)
  Receive Date: 20090417
  Receipt Date: 20090317
  Transmission Date: 20091009
  Serious: No
  Sender: FDA-Public Use
  Company Number: US-BAYER-200916019NA

PATIENT
  Sex: Female

DRUGS (1)
  1. AVELOX [Suspect]
     Indication: RESPIRATORY TRACT CONGESTION

REACTIONS (3)
  - ARTHRALGIA [None]
  - BURNING SENSATION [None]
  - OEDEMA PERIPHERAL [None]
